FAERS Safety Report 9086906 (Version 3)
Quarter: 2013Q2

REPORT INFORMATION
  Report Type: Spontaneous
  Country: US (occurrence: US)
  Receive Date: 20130131
  Receipt Date: 20130419
  Transmission Date: 20140414
  Serious: Yes (Hospitalization)
  Sender: FDA-Public Use
  Company Number: US-PFIZER INC-2013036695

PATIENT
  Age: 80 Year
  Sex: Female

DRUGS (6)
  1. REVATIO [Suspect]
     Dosage: UNK
  2. LETAIRIS [Suspect]
     Indication: COR PULMONALE CHRONIC
     Dosage: 5 MG, 1X/DAY
     Route: 048
     Dates: start: 20120927
  3. LETAIRIS [Suspect]
     Indication: RHEUMATOID ARTHRITIS
  4. LETAIRIS [Suspect]
     Indication: PULMONARY HYPERTENSION
  5. LETAIRIS [Suspect]
     Indication: RHEUMATOID ARTHRITIS
  6. TYVASO [Concomitant]
     Dosage: UNK

REACTIONS (3)
  - Renal failure [Unknown]
  - Oxygen saturation decreased [Unknown]
  - Arthritis [Unknown]
